FAERS Safety Report 4924607-8 (Version None)
Quarter: 2006Q1

REPORT INFORMATION
  Report Type: 
  Country: None (occurrence: None)
  Receive Date: 20060222
  Receipt Date: 20060209
  Transmission Date: 20060701
  Serious: Yes (Hospitalization, Other)
  Sender: FDA-Public Use
  Company Number: 2006021362

PATIENT
  Age: 41 Year
  Sex: Male
  Weight: 74 kg

DRUGS (1)
  1. SUTENT [Suspect]
     Indication: RENAL CELL CARCINOMA STAGE UNSPECIFIED
     Dosage: (50 MG, CYCLIC),  ORAL
     Route: 048
     Dates: start: 20060202, end: 20060205

REACTIONS (3)
  - ABDOMINAL PAIN [None]
  - PROTEINURIA [None]
  - VOMITING [None]
